FAERS Safety Report 4520139-X (Version None)
Quarter: 2004Q4

REPORT INFORMATION
  Report Type: 
  Country: None (occurrence: None)
  Receive Date: 20041202
  Receipt Date: 20041202
  Transmission Date: 20050328
  Serious: Yes (Death)
  Sender: FDA-Public Use
  Company Number: None

PATIENT
  Age: 68 Year
  Sex: Female

DRUGS (12)
  1. ADRIAMYCIN PFS [Suspect]
     Indication: BREAST CANCER
     Dosage: 120 MG IV
     Route: 042
     Dates: start: 20040625
  2. ADRIAMYCIN PFS [Suspect]
     Indication: BREAST CANCER
     Dosage: 120 MG IV
     Route: 042
     Dates: start: 20040713
  3. ADRIAMYCIN PFS [Suspect]
     Indication: BREAST CANCER
     Dosage: 120 MG IV
     Route: 042
     Dates: start: 20040727
  4. CYTOXAN [Suspect]
     Indication: BREAST CANCER
     Dosage: 1200 MG IV
     Route: 042
     Dates: start: 20040625
  5. CYTOXAN [Suspect]
     Indication: BREAST CANCER
     Dosage: 1200 MG IV
     Route: 042
     Dates: start: 20040713
  6. CYTOXAN [Suspect]
     Indication: BREAST CANCER
     Dosage: 1200 MG IV
     Route: 042
     Dates: start: 20040727
  7. COMPAZINE [Concomitant]
  8. COUMADIN [Concomitant]
  9. CARTIA XT [Concomitant]
  10. ENALOPRIL [Concomitant]
  11. HYDROCHLOROTHIAZIDE [Concomitant]
  12. GLYBURIDE [Concomitant]

REACTIONS (5)
  - CARDIO-RESPIRATORY ARREST [None]
  - DIARRHOEA [None]
  - LOSS OF CONSCIOUSNESS [None]
  - PANCYTOPENIA [None]
  - SYNCOPE [None]
